FAERS Safety Report 5583425-0 (Version None)
Quarter: 2008Q1

REPORT INFORMATION
  Report Type: 
  Country: None (occurrence: None)
  Receive Date: 20080107
  Receipt Date: 20071228
  Transmission Date: 20080703
  Serious: Yes (Other)
  Sender: FDA-Public Use
  Company Number: US-PFIZER INC-2008000667

PATIENT
  Sex: Female
  Weight: 113.4 kg

DRUGS (12)
  1. LYRICA [Suspect]
     Indication: FIBROMYALGIA
  2. LEVOTHYROXINE SODIUM [Concomitant]
  3. PROTONIX [Concomitant]
  4. CYMBALTA [Concomitant]
  5. WELLBUTRIN XL [Concomitant]
  6. ZYRTEC [Concomitant]
  7. VERAPAMIL [Concomitant]
  8. LAMICTAL [Concomitant]
  9. LITHIUM CARBONATE [Concomitant]
  10. TRAZODONE HCL [Concomitant]
  11. LUNESTA [Concomitant]
  12. RELAFEN [Concomitant]

REACTIONS (2)
  - HYPOMANIA [None]
  - MENTAL DISORDER [None]
